FAERS Safety Report 19895469 (Version 1)
Quarter: 2021Q3

REPORT INFORMATION
  Report Type: Spontaneous
  Country: US (occurrence: US)
  Receive Date: 20210928
  Receipt Date: 20210928
  Transmission Date: 20211014
  Serious: Yes (Death)
  Sender: FDA-Public Use
  Company Number: None

PATIENT
  Age: 75 Year
  Sex: Male

DRUGS (5)
  1. PROTONIX [Concomitant]
     Active Substance: PANTOPRAZOLE SODIUM
  2. TESTOPEL [Suspect]
     Active Substance: TESTOSTERONE
     Indication: TESTICULAR FAILURE
     Dosage: ?          OTHER DOSE:18 PELLETS;OTHER FREQUENCY:90 DAYS;?
     Route: 058
     Dates: start: 20210209
  3. FLONASE ALGY SPR [Concomitant]
  4. CRESTOR [Concomitant]
     Active Substance: ROSUVASTATIN CALCIUM
  5. RAPAFLO [Concomitant]
     Active Substance: SILODOSIN

REACTIONS (1)
  - Death [None]

NARRATIVE: CASE EVENT DATE: 202108
